FAERS Safety Report 5313412-9 (Version None)
Quarter: 2007Q2

REPORT INFORMATION
  Report Type: 
  Country: None (occurrence: None)
  Receive Date: 20070501
  Receipt Date: 20070425
  Transmission Date: 20071010
  Serious: Yes (Hospitalization)
  Sender: FDA-Public Use
  Company Number: DE-BAYER-200710448BVD

PATIENT
  Age: 27 Year
  Sex: Female
  Weight: 75 kg

DRUGS (6)
  1. AVELOX [Suspect]
     Indication: SINUSITIS
     Route: 048
     Dates: start: 20070330, end: 20070402
  2. EUTHYROX [Concomitant]
     Indication: AUTOIMMUNE THYROIDITIS
     Route: 048
  3. CERAZETTE [Concomitant]
     Route: 048
  4. DOLO-DOBENDAN [Concomitant]
  5. ACETAMINOPHEN W/ CODEINE [Concomitant]
     Route: 048
  6. PENHEXAL [Concomitant]
     Route: 065

REACTIONS (7)
  - AREFLEXIA [None]
  - DIPLOPIA [None]
  - GAIT DISTURBANCE [None]
  - HEADACHE [None]
  - NERVOUS SYSTEM DISORDER [None]
  - SPEECH DISORDER [None]
  - VERTIGO [None]
